FAERS Safety Report 8252514-4 (Version None)
Quarter: 2012Q2

REPORT INFORMATION
  Report Type: 
  Country: None (occurrence: None)
  Receive Date: 20120402
  Receipt Date: 20111021
  Transmission Date: 20120825
  Serious: No
  Sender: FDA-Public Use
  Company Number: US-ABBOTT-11P-163-0867940-00

PATIENT
  Sex: Male
  Weight: 90.8 kg

DRUGS (3)
  1. ANDROGEL [Suspect]
     Indication: BLOOD TESTOSTERONE DECREASED
     Dates: start: 20110101, end: 20110101
  2. ANDROGEL [Suspect]
     Indication: BLOOD TESTOSTERONE DECREASED
     Dosage: 3 PUMPS PER DAY
     Dates: start: 20111001
  3. UNKNOWN MEDICATION [Concomitant]
     Indication: DIABETES MELLITUS

REACTIONS (6)
  - THERAPEUTIC RESPONSE UNEXPECTED [None]
  - ENERGY INCREASED [None]
  - MUSCLE MASS [None]
  - BLOOD TESTOSTERONE DECREASED [None]
  - LIBIDO DECREASED [None]
  - BLOOD TESTOSTERONE ABNORMAL [None]
